FAERS Safety Report 8778303 (Version 2)
Quarter: 2012Q4

REPORT INFORMATION
  Report Type: 
  Country: ES (occurrence: ES)
  Receive Date: 20120912
  Receipt Date: 20121019
  Transmission Date: 20130627
  Serious: Yes (Hospitalization)
  Sender: FDA-Public Use
  Company Number: ES-ROCHE-1122178

PATIENT
  Sex: Female

DRUGS (3)
  1. XELODA [Suspect]
     Indication: ADENOCARCINOMA
     Route: 048
     Dates: end: 201112
  2. XELODA [Suspect]
     Route: 048
     Dates: end: 200903
  3. OXALIPLATIN [Suspect]
     Indication: ADENOCARCINOMA
     Route: 042
     Dates: end: 201112

REACTIONS (1)
  - Haemorrhagic stroke [Recovered/Resolved with Sequelae]
